FAERS Safety Report 5160774-1 (Version None)
Quarter: 2006Q4

REPORT INFORMATION
  Report Type: 
  Country: None (occurrence: None)
  Receive Date: 20060919
  Receipt Date: 20060712
  Transmission Date: 20070319
  Serious: No
  Sender: FDA-Public Use
  Company Number: BDI-008419

PATIENT
  Age: 46 Year
  Sex: Female
  Weight: 104.55 kg

DRUGS (2)
  1. MULTIHANCE [Suspect]
     Indication: CONVULSION
     Dosage: 20 ML ONCE IV
     Route: 042
     Dates: start: 20060706, end: 20060706
  2. MULTIHANCE [Suspect]
     Indication: NUCLEAR MAGNETIC RESONANCE IMAGING BRAIN
     Dosage: 20 ML ONCE IV
     Route: 042
     Dates: start: 20060706, end: 20060706

REACTIONS (1)
  - HYPERSENSITIVITY [None]
